FAERS Safety Report 10098712 (Version 1)
Quarter: 2014Q2

REPORT INFORMATION
  Report Type: Spontaneous
  Country: CN (occurrence: CN)
  Receive Date: 20140423
  Receipt Date: 20140423
  Transmission Date: 20141212
  Serious: Yes (Other)
  Sender: FDA-Public Use
  Company Number: CN-BAXTER-2014BAX019395

PATIENT
  Age: 25 Year
  Sex: Female
  Weight: 50 kg

DRUGS (2)
  1. 0.9% SODIUM CHLORIDE INJECTION [Suspect]
     Indication: MEDICATION DILUTION
     Route: 041
     Dates: start: 20130409, end: 20130411
  2. CEFMINOX SODIUM FOR INJECTION [Suspect]
     Indication: INFECTION
     Route: 041
     Dates: start: 20130409, end: 20130411

REACTIONS (1)
  - Anaphylactic reaction [Recovering/Resolving]
